FAERS Safety Report 10956488 (Version 1)
Quarter: 2015Q1

REPORT INFORMATION
  Report Type: Spontaneous
  Country: US (occurrence: None)
  Receive Date: 20150325
  Receipt Date: 20150325
  Transmission Date: 20150721
  Serious: Yes (Life-Threatening)
  Sender: FDA-Public Use
  Company Number: None

PATIENT
  Age: 72 Year
  Sex: Male
  Weight: 89.1 kg

DRUGS (24)
  1. CETACAINE ANESTHETIC [Suspect]
     Active Substance: BENZOCAINE\BUTAMBEN\TETRACAINE HYDROCHLORIDE
     Indication: ANAESTHESIA
     Dosage: SPRAY PRN/AS NEEDED TOPICAL
     Route: 061
  2. HYDROMORPHONE [Concomitant]
     Active Substance: HYDROMORPHONE
  3. MAGNESIUM SULFATE. [Concomitant]
     Active Substance: MAGNESIUM SULFATE
  4. LOVENOX [Concomitant]
     Active Substance: ENOXAPARIN SODIUM
  5. ACETAMINOPHEN. [Concomitant]
     Active Substance: ACETAMINOPHEN
  6. CEFOXITIN [Concomitant]
     Active Substance: CEFOXITIN\CEFOXITIN SODIUM
  7. CETACAINE ANESTHETIC [Suspect]
     Active Substance: BENZOCAINE\BUTAMBEN\TETRACAINE HYDROCHLORIDE
     Indication: ENDOTRACHEAL INTUBATION
     Dosage: SPRAY PRN/AS NEEDED TOPICAL
     Route: 061
  8. FENTANYL. [Concomitant]
     Active Substance: FENTANYL
  9. FLUCONAZOLE. [Concomitant]
     Active Substance: FLUCONAZOLE
  10. CETACAINE ANESTHETIC [Suspect]
     Active Substance: BENZOCAINE\BUTAMBEN\TETRACAINE HYDROCHLORIDE
     Indication: BRONCHOSCOPY
     Dosage: SPRAY PRN/AS NEEDED TOPICAL
     Route: 061
  11. POTASSIUM PHOSPHATE [Concomitant]
     Active Substance: POTASSIUM PHOSPHATE
  12. METOPROLOL [Concomitant]
     Active Substance: METOPROLOL
  13. PEPTAMEN AF TUBEFEED [Concomitant]
  14. ALBUMIN [Concomitant]
     Active Substance: ALBUMIN (HUMAN)
  15. TIOTROPIUM [Concomitant]
     Active Substance: TIOTROPIUM
  16. D51/2 + KCL [Concomitant]
  17. LIDOCAINE. [Concomitant]
     Active Substance: LIDOCAINE
  18. FUROSEMIDE. [Concomitant]
     Active Substance: FUROSEMIDE
  19. LACTATED RINGERS [Concomitant]
     Active Substance: CALCIUM CHLORIDE\POTASSIUM CHLORIDE\SODIUM CHLORIDE\SODIUM LACTATE
  20. HUMALOG [Concomitant]
     Active Substance: INSULIN LISPRO
  21. PANTOPRAZOLE [Concomitant]
     Active Substance: PANTOPRAZOLE SODIUM
  22. ALBUTEROL/IPRATROPIUM [Concomitant]
     Active Substance: ALBUTEROL\IPRATROPIUM
  23. MIDAZOLAM [Concomitant]
     Active Substance: MIDAZOLAM\MIDAZOLAM HYDROCHLORIDE
  24. CALCIUM GLUCONATE. [Concomitant]
     Active Substance: CALCIUM GLUCONATE

REACTIONS (1)
  - Methaemoglobinaemia [None]

NARRATIVE: CASE EVENT DATE: 20150322
